FAERS Safety Report 4952016-4 (Version None)
Quarter: 2006Q1

REPORT INFORMATION
  Report Type: 
  Country: None (occurrence: None)
  Receive Date: 20060322
  Receipt Date: 20060322
  Transmission Date: 20060701
  Serious: Yes (Life-Threatening, Hospitalization)
  Sender: FDA-Public Use
  Company Number: None

PATIENT
  Sex: Male
  Weight: 89.3586 kg

DRUGS (1)
  1. KETEK [Suspect]
     Dosage: 400 MG  2 A DAY  PO
     Route: 048
     Dates: start: 20051126, end: 20051128

REACTIONS (1)
  - HEPATITIS [None]
